FAERS Safety Report 19698983 (Version 2)
Quarter: 2021Q3

REPORT INFORMATION
  Report Type: Spontaneous
  Country: IN (occurrence: IN)
  Receive Date: 20210813
  Receipt Date: 20210827
  Transmission Date: 20211014
  Serious: No
  Sender: FDA-Public Use
  Company Number: IN-LUPIN PHARMACEUTICALS INC.-2021-14351

PATIENT

DRUGS (4)
  1. GLUCONORM G2 [Concomitant]
     Indication: DIABETES MELLITUS
     Dosage: UNK
     Route: 065
  2. CETIL TABS 500 MG (CEFUROXIME AXETIL) [Suspect]
     Active Substance: CEFUROXIME AXETIL
     Indication: PRODUCT USED FOR UNKNOWN INDICATION
     Dosage: UNK (CONSUMED 2 DOSES)
     Route: 048
     Dates: start: 20210729, end: 20210730
  3. RINIFOL [Concomitant]
     Indication: VITAMIN SUPPLEMENTATION
     Dosage: UNK
     Route: 065
  4. CALPOL [Concomitant]
     Active Substance: ACETAMINOPHEN
     Indication: PRODUCT USED FOR UNKNOWN INDICATION
     Dosage: UNK
     Route: 065

REACTIONS (2)
  - Rash [Recovered/Resolved]
  - Drug hypersensitivity [Recovered/Resolved]

NARRATIVE: CASE EVENT DATE: 20210729
